FAERS Safety Report 8247602-2 (Version None)
Quarter: 2012Q1

REPORT INFORMATION
  Report Type: 
  Country: None (occurrence: None)
  Receive Date: 20120330
  Receipt Date: 20120327
  Transmission Date: 20120608
  Serious: Yes (Death, Life-Threatening, Hospitalization, Other)
  Sender: FDA-Public Use
  Company Number: PHHY2011FR112908

PATIENT
  Sex: Male

DRUGS (13)
  1. TRAMADOL HCL [Suspect]
     Dosage: 50 MG, TID
     Route: 048
     Dates: end: 20111122
  2. HEXAQUINE [Suspect]
     Dosage: 3 DF, DAILY
     Dates: start: 19980101, end: 20111122
  3. MEDIATENSYL [Suspect]
     Dosage: 60 MG, BID
     Route: 048
     Dates: end: 20111122
  4. GLUCOPHAGE [Suspect]
     Dosage: 500 MG, BID
     Route: 048
     Dates: end: 20111122
  5. CARVEDILOL [Concomitant]
     Dosage: 12.5 MG, BID
  6. AVODART [Suspect]
     Dosage: 1 DF, DAILY
     Route: 048
     Dates: end: 20111122
  7. ACETAMINOPHEN [Concomitant]
     Dosage: 1 OR 2 CAPSULES 4 TIMES PER DAY
  8. INFLUENZA VACCINE [Suspect]
     Dosage: UNK UKN, UNK
     Route: 030
     Dates: start: 20111104
  9. ZOLPIDEM [Concomitant]
     Dosage: 10 MG, DAILY
  10. VALSARTAN  AND HYDROCHLOROTHIAZIDE [Suspect]
     Dosage: 1 DF, DAILY (160MG/25MG)
     Dates: end: 20111122
  11. NEXEN [Suspect]
     Dosage: 100 MG, BID
     Route: 048
     Dates: end: 20111122
  12. BEFIZAL [Suspect]
     Dosage: 400 MG, DAILY
     Route: 048
     Dates: end: 20111122
  13. AMLODIPINE BESYLATE [Concomitant]
     Dosage: 10 MG, DAILY

REACTIONS (8)
  - BLOOD ALBUMIN DECREASED [None]
  - CARDIAC FAILURE [None]
  - DEATH [None]
  - RENAL FAILURE [None]
  - ANAEMIA MACROCYTIC [None]
  - MALNUTRITION [None]
  - ANAEMIA HAEMOLYTIC AUTOIMMUNE [None]
  - MULTI-ORGAN FAILURE [None]
